FAERS Safety Report 5329657-8 (Version None)
Quarter: 2007Q2

REPORT INFORMATION
  Report Type: 
  Country: None (occurrence: None)
  Receive Date: 20070227
  Receipt Date: 20060524
  Transmission Date: 20071010
  Serious: No
  Sender: FDA-Public Use
  Company Number: 449467

PATIENT
  Age: 38 Year
  Sex: Female

DRUGS (1)
  1. ACCUTANE [Suspect]
     Indication: DRUG USE FOR UNKNOWN INDICATION
     Dosage: 80 MG DAILY  ORAL
     Route: 048
     Dates: end: 20060507

REACTIONS (1)
  - BLOOD TRIGLYCERIDES INCREASED [None]
